FAERS Safety Report 8963044 (Version 6)
Quarter: 2013Q4

REPORT INFORMATION
  Report Type: Spontaneous
  Country: US (occurrence: US)
  Receive Date: 20121213
  Receipt Date: 20131127
  Transmission Date: 20140711
  Serious: Yes (Hospitalization, Other)
  Sender: FDA-Public Use
  Company Number: US-009507513-1005USA04671

PATIENT
  Sex: Female
  Weight: 63.95 kg

DRUGS (12)
  1. FOSAMAX [Suspect]
     Indication: OSTEOPENIA
     Dosage: 10 MG, QD
     Route: 048
     Dates: start: 20000223, end: 20020309
  2. FOSAMAX [Suspect]
     Indication: OSTEOPOROSIS POSTMENOPAUSAL
     Dosage: 70 MG, QW
     Route: 048
     Dates: start: 20000527, end: 200802
  3. ALENDRONATE SODIUM [Suspect]
     Indication: OSTEOPOROSIS
     Dosage: 70 MG, UNK
     Route: 048
     Dates: start: 200802, end: 200912
  4. VITAMINS (UNSPECIFIED) [Concomitant]
     Dosage: QD
     Dates: start: 1990
  5. VITAMIN D (UNSPECIFIED) [Concomitant]
     Dosage: 2000 IU, QD
     Route: 048
     Dates: start: 1990
  6. VITAMIN D (UNSPECIFIED) [Concomitant]
     Dosage: 800 IU, UNK
  7. CITRICAL [Concomitant]
     Dosage: 1200 MG, BID
     Dates: start: 1990
  8. ASCORBIC ACID [Concomitant]
     Dosage: 500 MG, QD
     Dates: start: 1990
  9. OMEGA-3 MARINE TRIGLYCERIDES [Concomitant]
     Dosage: 1200 MG, QD
     Dates: start: 1990
  10. GLUCOSAMINE [Concomitant]
     Dosage: 1200 MG, QD
     Dates: start: 1990
  11. PREMPRO [Concomitant]
     Indication: DYSMENORRHOEA
     Dosage: 5 MG, UNK
     Dates: start: 199010
  12. CALCIUM (UNSPECIFIED) [Concomitant]
     Dosage: 1200 MG, UNK

REACTIONS (22)
  - Femur fracture [Recovering/Resolving]
  - Intramedullary rod insertion [Recovering/Resolving]
  - Intramedullary rod insertion [Unknown]
  - Femur fracture [Unknown]
  - Femur fracture [Unknown]
  - Pain in extremity [Unknown]
  - Femur fracture [Unknown]
  - Deep vein thrombosis [Unknown]
  - Pain [Unknown]
  - Blood disorder [Unknown]
  - Wrist fracture [Unknown]
  - Hypertension [Unknown]
  - Blood disorder [Recovered/Resolved]
  - Fall [Unknown]
  - Postmenopausal haemorrhage [Unknown]
  - Haemoglobin decreased [Unknown]
  - Blood potassium decreased [Unknown]
  - Uterine polyp [Unknown]
  - Arthralgia [Not Recovered/Not Resolved]
  - Muscle spasms [Unknown]
  - Pain in extremity [Unknown]
  - Inappropriate schedule of drug administration [Unknown]
